FAERS Safety Report 7785648-9 (Version None)
Quarter: 2011Q3

REPORT INFORMATION
  Report Type: 
  Country: None (occurrence: None)
  Receive Date: 20110929
  Receipt Date: 20110929
  Transmission Date: 20111222
  Serious: Yes (Other)
  Sender: FDA-Public Use
  Company Number: None

PATIENT
  Age: 20 Year
  Sex: Female

DRUGS (2)
  1. LEVONORGESTREL AND ETHINYL ESTRADIOL [Suspect]
     Indication: CONTRACEPTION
     Dosage: 1 TABLET
     Route: 048
     Dates: start: 20110504, end: 20110930
  2. SERTRALINE HYDROCHLORIDE [Concomitant]
     Route: 048

REACTIONS (2)
  - HAIR DISORDER [None]
  - ANDROGENETIC ALOPECIA [None]
